FAERS Safety Report 7831429-7 (Version None)
Quarter: 2011Q4

REPORT INFORMATION
  Report Type: 
  Country: None (occurrence: None)
  Receive Date: 20111021
  Receipt Date: 20111012
  Transmission Date: 20120403
  Serious: Yes (Hospitalization)
  Sender: FDA-Public Use
  Company Number: US-JNJFOC-20110811347

PATIENT
  Sex: Female
  Weight: 44.4 kg

DRUGS (7)
  1. PREDNISONE [Concomitant]
  2. MULTI-VITAMINS [Concomitant]
  3. HUMIRA [Concomitant]
     Dates: start: 20100322
  4. MERCAPTOPURINE [Concomitant]
  5. FISH OIL [Concomitant]
  6. CIMZIA [Concomitant]
  7. REMICADE [Suspect]
     Indication: INFLAMMATORY BOWEL DISEASE
     Route: 042
     Dates: start: 20041004, end: 20050603

REACTIONS (1)
  - CROHN'S DISEASE [None]
